FAERS Safety Report 21497062 (Version 1)
Quarter: 2022Q4

REPORT INFORMATION
  Report Type: Spontaneous
  Country: US (occurrence: US)
  Receive Date: 20221023
  Receipt Date: 20221023
  Transmission Date: 20230112
  Serious: No
  Sender: FDA-Public Use
  Company Number: US-CELLTRION INC.-2022US012434

PATIENT

DRUGS (21)
  1. INFLECTRA [Suspect]
     Active Substance: INFLIXIMAB-DYYB
     Indication: Product used for unknown indication
     Dosage: 300 MG Q8WKS
     Route: 065
  2. TYLENOL [Concomitant]
     Active Substance: ACETAMINOPHEN
     Dosage: 325 MG, T=2 TABS QID AS NEEDED FOR PAIN
     Route: 048
  3. ZOSTRIX [CAPSAICIN] [Concomitant]
     Dosage: 1 APP, TOPICAL, TID, PRN AS NEEDED FOR PAIN PRN
     Route: 061
  4. RESTASIS [Concomitant]
     Active Substance: CYCLOSPORINE
     Dosage: UNK, PRN DRY EYES
     Route: 047
  5. CYMBALTA [Concomitant]
     Active Substance: DULOXETINE HYDROCHLORIDE
     Dosage: 1 DAILY (60 MG)
     Route: 048
  6. FUROSEMIDE [Concomitant]
     Active Substance: FUROSEMIDE
     Dosage: DAILY (20 MG)
     Route: 048
  7. IBUPROFEN [Concomitant]
     Active Substance: IBUPROFEN
     Dosage: 4 EVERY 4-6 HOURS AS NEEDED (200 MG)
     Route: 048
  8. IBUPROFEN [Concomitant]
     Active Substance: IBUPROFEN
     Dosage: 1 TAB(S), PO, BID, AS NEEDED
     Route: 048
  9. METHIMAZOLE [Concomitant]
     Active Substance: METHIMAZOLE
     Dosage: 1 TAB(S), PO, Q8H
     Route: 048
  10. METOPROLOL [Concomitant]
     Active Substance: METOPROLOL
     Dosage: 1 CAP(S), PO, DAILY
     Route: 048
  11. PANTOPRAZOLE [Concomitant]
     Active Substance: PANTOPRAZOLE
     Dosage: 40 MG, DAILY
     Route: 048
  12. PREDNISOLONE [Concomitant]
     Active Substance: PREDNISOLONE
     Dosage: 1 DROP(S), EYES, BOTH, DAILY
     Route: 047
  13. PREDNISONE [Concomitant]
     Active Substance: PREDNISONE
     Dosage: 3 TAB(S), PO, 3 TABS DAILY X 3 DAYS; 2 TABS DAILY X 3 DAYS, 1 TAB DAILY X 3 DAYS, 1/2 TAB DAILY
     Route: 048
  14. SERTRALINE [Concomitant]
     Active Substance: SERTRALINE HYDROCHLORIDE
     Dosage: 1 TAB DAILY (50 MG)
     Route: 048
  15. SERTRALINE [Concomitant]
     Active Substance: SERTRALINE HYDROCHLORIDE
  16. ACETAMINOPHEN [Concomitant]
     Active Substance: ACETAMINOPHEN
     Dosage: 1000 MG, PO, ONCE
     Route: 048
     Dates: start: 20220717, end: 20220717
  17. DEXILANT [Concomitant]
     Active Substance: DEXLANSOPRAZOLE
     Dosage: 1 CAP(S), PO, DAILY
     Route: 048
  18. BENADRYL [Concomitant]
     Active Substance: DIPHENHYDRAMINE HYDROCHLORIDE
     Dosage: 25 MG, PO, ONCE
     Route: 048
     Dates: start: 20220714, end: 20220714
  19. BENADRYL [Concomitant]
     Active Substance: DIPHENHYDRAMINE HYDROCHLORIDE
     Dosage: 25 MG, PO, ONCE
     Route: 048
     Dates: start: 20220519, end: 20220519
  20. DIPHENHYDRAMINE [Concomitant]
     Active Substance: DIPHENHYDRAMINE
     Dosage: 25 MG, IV, ONCE
     Route: 042
     Dates: start: 20220714, end: 20220714
  21. GABAPENTIN [Concomitant]
     Active Substance: GABAPENTIN
     Dosage: 1 CAP(S), PO, TID
     Route: 048

REACTIONS (9)
  - Back pain [Recovered/Resolved]
  - Hyperhidrosis [Recovered/Resolved]
  - Pruritus [Recovered/Resolved]
  - Flushing [Recovered/Resolved]
  - Dyspnoea [Recovered/Resolved]
  - Chest pain [Recovered/Resolved]
  - Nausea [Recovered/Resolved]
  - Dizziness [Recovered/Resolved]
  - Product quality issue [Recovered/Resolved]

NARRATIVE: CASE EVENT DATE: 20220714
